FAERS Safety Report 8155369-1 (Version None)
Quarter: 2012Q1

REPORT INFORMATION
  Report Type: 
  Country: None (occurrence: None)
  Receive Date: 20120222
  Receipt Date: 20120208
  Transmission Date: 20120608
  Serious: No
  Sender: FDA-Public Use
  Company Number: US-BIOGENIDEC-2012BI005192

PATIENT
  Sex: Female

DRUGS (4)
  1. GABAPENTIN [Concomitant]
     Indication: NEURALGIA
  2. AVONEX [Suspect]
     Indication: MULTIPLE SCLEROSIS
     Route: 030
     Dates: start: 20101216, end: 20110430
  3. BACLOFEN [Concomitant]
     Indication: MUSCLE SPASMS
  4. GABAPENTIN [Concomitant]
     Indication: HYPOAESTHESIA

REACTIONS (4)
  - MULTIPLE SCLEROSIS RELAPSE [None]
  - INFLUENZA LIKE ILLNESS [None]
  - STRESS [None]
  - HYPOAESTHESIA [None]
